FAERS Safety Report 11781959 (Version 1)
Quarter: 2015Q4

REPORT INFORMATION
  Report Type: Spontaneous
  Country: KR (occurrence: KR)
  Receive Date: 20151126
  Receipt Date: 20151126
  Transmission Date: 20160305
  Serious: Yes (Hospitalization)
  Sender: FDA-Public Use
  Company Number: KR-AMGEN-KORCT2015125635

PATIENT
  Age: 42 Year
  Sex: Female
  Weight: 44 kg

DRUGS (24)
  1. G-LASTA [Suspect]
     Active Substance: PEGFILGRASTIM
     Indication: FEBRILE NEUTROPENIA
     Dosage: 6 MG, Q3WK
     Route: 058
     Dates: start: 20150726
  2. DOCETAXEL. [Concomitant]
     Active Substance: DOCETAXEL
     Dosage: 104 MG, UNK
     Route: 042
     Dates: start: 20150905, end: 20150905
  3. G-LASTA [Suspect]
     Active Substance: PEGFILGRASTIM
     Dosage: 6 MG, Q3WK
     Route: 058
     Dates: start: 20150906
  4. DOCETAXEL. [Concomitant]
     Active Substance: DOCETAXEL
     Dosage: 104 MG, UNK
     Route: 042
     Dates: start: 20151107, end: 20151107
  5. CYCLOPHOSPHAMIDE. [Concomitant]
     Active Substance: CYCLOPHOSPHAMIDE
     Dosage: 695 MG, UNK
     Route: 042
     Dates: start: 20150815, end: 20150815
  6. CYCLOPHOSPHAMIDE. [Concomitant]
     Active Substance: CYCLOPHOSPHAMIDE
     Dosage: 695 MG, UNK
     Route: 042
     Dates: start: 20150905, end: 20150905
  7. G-LASTA [Suspect]
     Active Substance: PEGFILGRASTIM
     Dosage: 6 MG, Q3WK
     Route: 058
     Dates: start: 20150927
  8. DOCETAXEL. [Concomitant]
     Active Substance: DOCETAXEL
     Dosage: 104 MG, UNK
     Route: 042
     Dates: start: 20150725, end: 20150725
  9. DOXORUBICIN [Concomitant]
     Active Substance: DOXORUBICIN
     Dosage: 69 MG, UNK
     Route: 042
     Dates: start: 20150725, end: 20150725
  10. G-LASTA [Suspect]
     Active Substance: PEGFILGRASTIM
     Dosage: 6 MG, Q3WK
     Route: 058
     Dates: start: 20151018
  11. DOCETAXEL. [Concomitant]
     Active Substance: DOCETAXEL
     Dosage: 104 MG, UNK
     Route: 042
     Dates: start: 20151017, end: 20151017
  12. DOCETAXEL. [Concomitant]
     Active Substance: DOCETAXEL
     Dosage: 104 MG, UNK
     Route: 042
     Dates: start: 20150815, end: 20150815
  13. DOCETAXEL. [Concomitant]
     Active Substance: DOCETAXEL
     Dosage: 104 MG, UNK
     Route: 042
     Dates: start: 20150926, end: 20150926
  14. DOXORUBICIN [Concomitant]
     Active Substance: DOXORUBICIN
     Dosage: 69 MG, UNK
     Route: 042
     Dates: start: 20150815, end: 20150815
  15. DOXORUBICIN [Concomitant]
     Active Substance: DOXORUBICIN
     Dosage: 69 MG, UNK
     Route: 042
     Dates: start: 20151107, end: 20151107
  16. G-LASTA [Suspect]
     Active Substance: PEGFILGRASTIM
     Dosage: 6 MG, Q3WK
     Route: 058
     Dates: start: 20151108
  17. DOXORUBICIN [Concomitant]
     Active Substance: DOXORUBICIN
     Dosage: 69 MG, UNK
     Route: 042
     Dates: start: 20150905, end: 20150905
  18. DOXORUBICIN [Concomitant]
     Active Substance: DOXORUBICIN
     Dosage: 69 MG, UNK
     Route: 042
     Dates: start: 20151017, end: 20151017
  19. CYCLOPHOSPHAMIDE. [Concomitant]
     Active Substance: CYCLOPHOSPHAMIDE
     Dosage: 695 MG, UNK
     Route: 042
     Dates: start: 20150926, end: 20150926
  20. CYCLOPHOSPHAMIDE. [Concomitant]
     Active Substance: CYCLOPHOSPHAMIDE
     Dosage: 695 MG, UNK
     Route: 042
     Dates: start: 20151017, end: 20151017
  21. CYCLOPHOSPHAMIDE. [Concomitant]
     Active Substance: CYCLOPHOSPHAMIDE
     Dosage: 695 MG, UNK
     Route: 042
     Dates: start: 20151107, end: 20151107
  22. G-LASTA [Suspect]
     Active Substance: PEGFILGRASTIM
     Dosage: 6 MG, Q3WK
     Route: 058
     Dates: start: 20150816
  23. DOXORUBICIN [Concomitant]
     Active Substance: DOXORUBICIN
     Dosage: 69 MG, UNK
     Route: 042
     Dates: start: 20150926, end: 20150926
  24. CYCLOPHOSPHAMIDE. [Concomitant]
     Active Substance: CYCLOPHOSPHAMIDE
     Dosage: 695 MG, UNK
     Route: 042
     Dates: start: 20150725, end: 20150725

REACTIONS (1)
  - Neutropenia [Recovered/Resolved]

NARRATIVE: CASE EVENT DATE: 20151113
